FAERS Safety Report 19107299 (Version 2)
Quarter: 2021Q2

REPORT INFORMATION
  Report Type: Spontaneous
  Country: US (occurrence: US)
  Receive Date: 20210408
  Receipt Date: 20210513
  Transmission Date: 20210717
  Serious: No
  Sender: FDA-Public Use
  Company Number: US-HETERO-HET2021US00762

PATIENT

DRUGS (3)
  1. LOSARTAN. [Suspect]
     Active Substance: LOSARTAN
     Dosage: 50 MG, Q.A.M. (100 MG WAS SPLIT HALF)
     Route: 048
     Dates: start: 20210315, end: 20210320
  2. LOSARTAN. [Suspect]
     Active Substance: LOSARTAN
     Dosage: UNK
     Route: 048
     Dates: end: 20210321
  3. LOSARTAN. [Suspect]
     Active Substance: LOSARTAN
     Indication: BLOOD PRESSURE ABNORMAL
     Dosage: 100 MG, Q.A.M.
     Route: 048
     Dates: start: 201802

REACTIONS (2)
  - Myalgia [Recovering/Resolving]
  - Wrong technique in product usage process [Unknown]
